FAERS Safety Report 6729889-8 (Version None)
Quarter: 2010Q2

REPORT INFORMATION
  Report Type: 
  Country: None (occurrence: None)
  Receive Date: 20100518
  Receipt Date: 20100503
  Transmission Date: 20101027
  Serious: Yes (Hospitalization, Other)
  Sender: FDA-Public Use
  Company Number: PHEH2007US09163

PATIENT
  Sex: Female
  Weight: 65.76 kg

DRUGS (28)
  1. COMBIPATCH [Suspect]
     Indication: MENOPAUSE
     Dosage: UNK
     Route: 062
     Dates: start: 20021114, end: 20050401
  2. ORAL CONTRACEPTIVE NOS [Suspect]
     Dosage: UNK, UNK
     Route: 048
     Dates: start: 19650101, end: 19720101
  3. PREMPRO [Suspect]
     Indication: MENOPAUSE
     Dates: start: 19960101, end: 19990101
  4. ESTRATEST [Suspect]
     Indication: MENOPAUSE
     Dosage: UNK
     Dates: start: 19990601, end: 20020123
  5. PROVERA [Suspect]
     Indication: MENOPAUSE
     Dates: start: 19990601, end: 20050301
  6. MEDROXYPROGESTERONE [Suspect]
     Indication: MENOPAUSE
     Dosage: 2.5 MG / DAILY
     Dates: start: 20040201, end: 20041201
  7. FEMHRT [Suspect]
     Indication: MENOPAUSE
     Dosage: UNK
     Dates: start: 20020123, end: 20021114
  8. ESTRACE [Suspect]
     Indication: MENOPAUSE
     Dosage: 0.5 MG / QD
     Dates: start: 20021231, end: 20050301
  9. ESTRADIOL [Suspect]
     Indication: MENOPAUSE
     Dosage: UNK
     Dates: start: 20040101, end: 20041201
  10. CALCIUM WITH VITAMIN D [Concomitant]
     Dosage: 600 MG / QD
  11. ERYTHROMYCIN ETHYLSUCCINATE [Concomitant]
     Dosage: 400 MG/ ONE TABLET 3 X DAILY
  12. ALDARA [Concomitant]
     Dosage: UNK
  13. NORFLEX [Concomitant]
     Dosage: 100 MG / BID PRN
  14. TAMOXIFEN CITRATE [Concomitant]
     Dosage: 10 MG / 2 TABLETS DAILY
  15. LAMISIL                            /00992601/ [Concomitant]
     Dosage: 250 MG / DAILY
  16. ARIMIDEX [Concomitant]
     Dosage: UNK
  17. LISINOPRIL [Concomitant]
     Dosage: 20 MG / DAILY
     Route: 048
  18. DICLOFENAC [Concomitant]
     Dosage: 75 MG / 2 X DAILY
     Route: 048
  19. IBANDRONATE SODIUM [Concomitant]
     Dosage: UNK
  20. GENTAMICIN [Concomitant]
     Dosage: UNK
  21. TRAZODONE HCL [Concomitant]
  22. NAPROSYN [Concomitant]
  23. DARVOCET-N 100 [Concomitant]
  24. DURATUSS [Concomitant]
  25. AVELOX [Concomitant]
  26. PREDNISONE [Concomitant]
  27. ALBUTEROL [Concomitant]
  28. NEUPOGEN [Concomitant]

REACTIONS (60)
  - AGITATION [None]
  - ANXIETY DISORDER [None]
  - ARTHRALGIA [None]
  - ASPIRATION BREAST [None]
  - BASAL CELL CARCINOMA [None]
  - BIOPSY [None]
  - BIOPSY SITE UNSPECIFIED ABNORMAL [None]
  - BIOPSY SKIN [None]
  - BONE DENSITY DECREASED [None]
  - BREAST CANCER IN SITU [None]
  - BREAST DISORDER [None]
  - BREAST FIBROSIS [None]
  - BREAST MASS [None]
  - BREAST PAIN [None]
  - CHEST PAIN [None]
  - COUGH [None]
  - DEHYDRATION [None]
  - DEPRESSION [None]
  - DYSPHAGIA [None]
  - ERYTHEMA [None]
  - FACIAL LESION EXCISION [None]
  - FATIGUE [None]
  - FUNGAL INFECTION [None]
  - GASTROOESOPHAGEAL REFLUX DISEASE [None]
  - HAIR FOLLICLE TUMOUR BENIGN [None]
  - HILAR LYMPHADENOPATHY [None]
  - HOT FLUSH [None]
  - HYPONATRAEMIA [None]
  - LIGAMENT SPRAIN [None]
  - LOOSE TOOTH [None]
  - LUNG DISORDER [None]
  - LYMPHADENOPATHY MEDIASTINAL [None]
  - MALIGNANT BREAST LUMP REMOVAL [None]
  - MAMMOGRAM ABNORMAL [None]
  - MANIA [None]
  - MASTECTOMY [None]
  - MUSCLE STRAIN [None]
  - MUSCLE TIGHTNESS [None]
  - MUSCULAR WEAKNESS [None]
  - NAUSEA [None]
  - NIGHT SWEATS [None]
  - ONYCHALGIA [None]
  - OSTEOPENIA [None]
  - OSTEOPOROSIS [None]
  - PAIN [None]
  - PANCYTOPENIA [None]
  - PRODUCTIVE COUGH [None]
  - RADIATION OESOPHAGITIS [None]
  - RADIATION SKIN INJURY [None]
  - RADIOTHERAPY [None]
  - RASH [None]
  - ROAD TRAFFIC ACCIDENT [None]
  - SCAB [None]
  - SEBORRHOEIC KERATOSIS [None]
  - SKIN BURNING SENSATION [None]
  - SKIN REACTION [None]
  - SMALL CELL LUNG CANCER STAGE UNSPECIFIED [None]
  - THROMBOCYTOPENIA [None]
  - TOOTH EXTRACTION [None]
  - VOMITING [None]
